FAERS Safety Report 21530723 (Version 1)
Quarter: 2022Q4

REPORT INFORMATION
  Report Type: Spontaneous
  Country: US (occurrence: None)
  Receive Date: 20221028
  Receipt Date: 20221028
  Transmission Date: 20230112
  Serious: Yes (Hospitalization)
  Sender: FDA-Public Use
  Company Number: None

PATIENT
  Sex: Male

DRUGS (2)
  1. ADCIRCA [Suspect]
     Active Substance: TADALAFIL
     Indication: Pulmonary arterial hypertension
     Dosage: FREQUENCY : DAILY;?
     Route: 048
     Dates: start: 20200212
  2. OPSUMIT [Suspect]
     Active Substance: MACITENTAN

REACTIONS (5)
  - Drug ineffective [None]
  - Condition aggravated [None]
  - Dyspnoea [None]
  - COVID-19 immunisation [None]
  - Immunisation reaction [None]
